FAERS Safety Report 5642694-9 (Version None)
Quarter: 2008Q1

REPORT INFORMATION
  Report Type: 
  Country: None (occurrence: None)
  Receive Date: 20080228
  Receipt Date: 20080222
  Transmission Date: 20080703
  Serious: Yes (Life-Threatening)
  Sender: FDA-Public Use
  Company Number: US-BAXTER-2008BH001246

PATIENT
  Age: 71 Year
  Sex: Male
  Weight: 80 kg

DRUGS (3)
  1. HEPARIN SODIUM [Suspect]
     Indication: CORONARY ARTERY BYPASS
     Route: 040
     Dates: start: 20080110, end: 20080110
  2. PLAVIX [Suspect]
     Indication: DRUG USE FOR UNKNOWN INDICATION
     Dosage: DOSE UNIT:UNKNOWN
     Route: 048
  3. ASPIRIN [Suspect]
     Indication: DRUG USE FOR UNKNOWN INDICATION
     Dosage: DOSE UNIT:UNKNOWN
     Route: 048

REACTIONS (2)
  - HYPOTENSION [None]
  - PLATELET COUNT DECREASED [None]
